FAERS Safety Report 6532574-9 (Version None)
Quarter: 2010Q1

REPORT INFORMATION
  Report Type: 
  Country: None (occurrence: None)
  Receive Date: 20100111
  Receipt Date: 20100107
  Transmission Date: 20100710
  Serious: Yes (Other)
  Sender: FDA-Public Use
  Company Number: GB-ROCHE-526073

PATIENT
  Sex: Female
  Weight: 109 kg

DRUGS (9)
  1. ORLISTAT [Suspect]
     Route: 048
     Dates: start: 20070308, end: 20070905
  2. AMITRIPTYLINE [Concomitant]
     Route: 048
     Dates: start: 19950718
  3. FUROSEMIDE [Concomitant]
     Route: 048
     Dates: start: 20000814
  4. LISINOPRIL [Concomitant]
     Indication: HYPERTENSION
     Route: 048
     Dates: start: 20060804
  5. LERCANIDIPINE [Concomitant]
     Indication: HYPERTENSION
     Route: 048
     Dates: start: 20060710
  6. PARACETAMOL [Concomitant]
  7. DIHYDROCODEINE BITARTRATE INJ [Concomitant]
  8. QUININE SULPHATE [Concomitant]
  9. RIMONABANT [Concomitant]
     Dates: start: 20070925

REACTIONS (2)
  - CEREBROVASCULAR ACCIDENT [None]
  - TRANSIENT ISCHAEMIC ATTACK [None]
